FAERS Safety Report 9731910 (Version 1)
Quarter: 2013Q4

REPORT INFORMATION
  Report Type: Report from Study
  Country: US (occurrence: US)
  Receive Date: 20131205
  Receipt Date: 20131205
  Transmission Date: 20140711
  Serious: No
  Sender: FDA-Public Use
  Company Number: PHEH2013US025059

PATIENT
  Age: 70 Year
  Sex: Male

DRUGS (17)
  1. TASIGNA [Suspect]
     Indication: CHRONIC MYELOID LEUKAEMIA
     Dosage: 400 MG, BID
     Route: 048
     Dates: start: 20100824
  2. BETAMETHASONE [Concomitant]
  3. CLOTRIMAZOLE [Concomitant]
  4. VITAMIN E [Concomitant]
  5. ATENOLOL [Concomitant]
  6. ALPRAZOLAM [Concomitant]
  7. OXYCONTIN [Concomitant]
  8. FENTANYL [Concomitant]
  9. DULCOLAX [Concomitant]
  10. HYDROCHLOROTHIAZIDE [Concomitant]
  11. BENAZEPRIL [Concomitant]
  12. LOTENSIN [Concomitant]
  13. PSYLLIUM [Concomitant]
  14. VITAMIN D [Concomitant]
  15. BISACODYL [Concomitant]
  16. ASPIRIN [Concomitant]
  17. PICATO [Concomitant]

REACTIONS (2)
  - Phimosis [Unknown]
  - Urinary incontinence [Unknown]
